FAERS Safety Report 23750432 (Version 1)
Quarter: 2024Q2

REPORT INFORMATION
  Report Type: Report from Study
  Country: CA (occurrence: CA)
  Receive Date: 20240417
  Receipt Date: 20240417
  Transmission Date: 20240716
  Serious: Yes (Other)
  Sender: FDA-Public Use
  Company Number: CA-CELLTRION INC.-2024CA008720

PATIENT

DRUGS (6)
  1. RITUXIMAB [Suspect]
     Active Substance: RITUXIMAB
     Indication: Sjogren^s syndrome
     Dosage: 1000.0 MILLIGRAM
     Route: 042
  2. RITUXIMAB [Suspect]
     Active Substance: RITUXIMAB
     Indication: Parotitis
     Dosage: 1000.0 MILLIGRAM
     Route: 042
  3. ACETAMINOPHEN\BUTALBITAL\CAFFEINE\CODEINE PHOSPHATE [Concomitant]
     Active Substance: ACETAMINOPHEN\BUTALBITAL\CAFFEINE\CODEINE PHOSPHATE
     Indication: Product used for unknown indication
     Dosage: 650.0 MILLIGRAM
     Route: 048
  4. DIPHENHYDRAMINE HYDROCHLORIDE;SALICYLAMIDE [Concomitant]
     Indication: Product used for unknown indication
     Dosage: 50.0 MILLIGRAM
     Route: 048
  5. METHYLPREDNISOLONE SODIUM SUCCINATE [Concomitant]
     Active Substance: METHYLPREDNISOLONE SODIUM SUCCINATE
     Indication: Product used for unknown indication
     Dosage: 100.0 MILLIGRAM
     Route: 042
  6. METHYLPREDNISOLONE\NEOMYCIN SULFATE [Concomitant]
     Active Substance: METHYLPREDNISOLONE\NEOMYCIN SULFATE
     Indication: Product used for unknown indication
     Dosage: 100.0 MILLIGRAM
     Route: 042

REACTIONS (12)
  - Immunodeficiency [Recovered/Resolved]
  - Head discomfort [Recovered/Resolved]
  - Pharyngeal paraesthesia [Recovered/Resolved]
  - Pulse pressure increased [Recovered/Resolved]
  - Tongue disorder [Recovered/Resolved]
  - Weight decreased [Recovered/Resolved]
  - Sinusitis [Recovered/Resolved]
  - Cough [Recovered/Resolved]
  - Paraesthesia [Recovered/Resolved]
  - Rhinorrhoea [Recovered/Resolved]
  - Off label use [Recovered/Resolved]
  - Intentional product use issue [Unknown]
